FAERS Safety Report 9340700 (Version 2)
Quarter: 2013Q2

REPORT INFORMATION
  Report Type: Spontaneous
  Country: US (occurrence: US)
  Receive Date: 20130610
  Receipt Date: 20130614
  Transmission Date: 20140414
  Serious: Yes (Death)
  Sender: FDA-Public Use
  Company Number: US-BAXTER-2013BAX016827

PATIENT
  Age: 65 Year
  Sex: Female

DRUGS (2)
  1. DIANEAL LOW CALCIUM [Suspect]
     Indication: PERITONEAL DIALYSIS
     Route: 033
     Dates: start: 2012, end: 20130316
  2. DIANEAL LOW CALCIUM [Suspect]
     Route: 033
     Dates: end: 20130516

REACTIONS (2)
  - Death [Fatal]
  - Memory impairment [Unknown]
